FAERS Safety Report 4740967-5 (Version None)
Quarter: 2005Q3

REPORT INFORMATION
  Report Type: 
  Country: None (occurrence: None)
  Receive Date: 20050810
  Receipt Date: 20050524
  Transmission Date: 20060218
  Serious: No
  Sender: FDA-Public Use
  Company Number: US-GLAXOSMITHKLINE-A0559939A

PATIENT
  Sex: Male

DRUGS (5)
  1. PAXIL [Suspect]
     Indication: DEPRESSION
     Dosage: 10MG PER DAY
     Route: 048
     Dates: start: 20050421
  2. XANAX [Concomitant]
  3. CRESTOR [Concomitant]
  4. AVODART [Concomitant]
  5. KLONOPIN [Concomitant]
     Route: 065

REACTIONS (1)
  - DIZZINESS [None]
